FAERS Safety Report 11081199 (Version 1)
Quarter: 2015Q2

REPORT INFORMATION
  Report Type: Spontaneous
  Country: TR (occurrence: TR)
  Receive Date: 20150501
  Receipt Date: 20150501
  Transmission Date: 20150821
  Serious: Yes (Other)
  Sender: FDA-Public Use
  Company Number: TR-ACTAVIS-2015-08773

PATIENT
  Age: 27 Year
  Sex: Male
  Weight: 73 kg

DRUGS (5)
  1. AVIL                               /00085102/ [Concomitant]
     Indication: PRODUCT USED FOR UNKNOWN INDICATION
     Dosage: 45.5 MG, UNKNOWN
     Route: 042
  2. ULCURAN [Concomitant]
     Indication: PRODUCT USED FOR UNKNOWN INDICATION
     Dosage: 50 MG, UNKNOWN
     Route: 042
  3. DEKSAMET                           /00016001/ [Concomitant]
     Indication: PRODUCT USED FOR UNKNOWN INDICATION
     Dosage: 8 MG, UNKNOWN
     Route: 042
  4. VOTRON [Concomitant]
     Indication: PRODUCT USED FOR UNKNOWN INDICATION
     Dosage: 250 ?G, UNKNOWN
     Route: 042
  5. CURATINOX [Suspect]
     Active Substance: OXALIPLATIN
     Indication: PRODUCT USED FOR UNKNOWN INDICATION
     Dosage: 160 MG, DAILY
     Route: 042
     Dates: start: 20150311

REACTIONS (8)
  - Vomiting [Recovered/Resolved]
  - Cyanosis [None]
  - Respiratory distress [Recovered/Resolved]
  - Nausea [Recovered/Resolved]
  - Cyanosis [Recovered/Resolved]
  - Hyperhidrosis [Recovered/Resolved]
  - Hypotension [Recovered/Resolved]
  - Urticaria [Recovered/Resolved]

NARRATIVE: CASE EVENT DATE: 20150311
